FAERS Safety Report 4917709-3 (Version None)
Quarter: 2006Q1

REPORT INFORMATION
  Report Type: 
  Country: None (occurrence: None)
  Receive Date: 20060221
  Receipt Date: 20060208
  Transmission Date: 20060701
  Serious: Yes (Life-Threatening, Hospitalization)
  Sender: FDA-Public Use
  Company Number: FI-ROCHE-435530

PATIENT
  Age: 67 Year
  Sex: Female

DRUGS (7)
  1. XELODA [Suspect]
     Route: 048
     Dates: start: 20020915
  2. XELODA [Suspect]
     Route: 048
     Dates: start: 20051223, end: 20051230
  3. DIGOXIN SEMI [Concomitant]
     Dosage: FREQUENCY = 1X1
     Route: 048
  4. EMCONCOR [Concomitant]
     Route: 048
  5. ENALAPRIL [Concomitant]
     Dosage: TRADE NAME: LINATIL
     Route: 048
  6. DUREKAL [Concomitant]
     Route: 048
  7. FURESIS [Concomitant]
     Route: 048

REACTIONS (2)
  - VENTRICULAR FIBRILLATION [None]
  - VITAL FUNCTIONS ABNORMAL [None]
